FAERS Safety Report 9494653 (Version 1)
Quarter: 2013Q3

REPORT INFORMATION
  Report Type: Spontaneous
  Country: DE (occurrence: DE)
  Receive Date: 20130903
  Receipt Date: 20130903
  Transmission Date: 20140515
  Serious: Yes (Hospitalization)
  Sender: FDA-Public Use
  Company Number: DE-SANOFI-AVENTIS-2013SA085956

PATIENT
  Age: 75 Year
  Sex: Female
  Weight: 72 kg

DRUGS (8)
  1. MULTAQ [Suspect]
     Indication: ATRIAL FIBRILLATION
     Route: 048
     Dates: start: 20130820, end: 20130826
  2. XARELTO [Concomitant]
     Indication: ATRIAL FIBRILLATION
     Dosage: DOSE; 0-0-1
     Route: 048
  3. METOPROLOL [Concomitant]
     Indication: ATRIAL FIBRILLATION
     Dosage: DOSE; 1-0-1
     Route: 048
  4. KINZALKOMB [Concomitant]
     Indication: HYPERTENSION
     Dosage: DOSE; 1-0-0
     Route: 048
  5. EUTHYROX [Concomitant]
     Indication: HYPOTHYROIDISM
     Route: 048
  6. FELODIPINE [Concomitant]
     Indication: HYPERTENSION
     Dosage: DOSE; 1-0-0
     Route: 048
  7. LOCOL [Concomitant]
     Indication: HYPERCHOLESTEROLAEMIA
     Dosage: DOSE; 0-0-1
     Route: 048
  8. DIGITOXIN [Concomitant]
     Indication: ATRIAL FIBRILLATION
     Dosage: DOSE; 1-0-0
     Route: 048
     Dates: end: 20130820

REACTIONS (3)
  - Electrocardiogram R on T phenomenon [Unknown]
  - Electrocardiogram QT prolonged [Unknown]
  - Arrhythmia [Unknown]
